FAERS Safety Report 15267463 (Version 1)
Quarter: 2018Q3

REPORT INFORMATION
  Report Type: Spontaneous
  Country: US (occurrence: US)
  Receive Date: 20180724
  Receipt Date: 20180724
  Transmission Date: 20181010
  Serious: Yes (Hospitalization)
  Sender: FDA-Public Use
  Company Number: None

PATIENT
  Age: 60 Year
  Sex: Female
  Weight: 83 kg

DRUGS (1)
  1. CARBAMAZEPINE. [Suspect]
     Active Substance: CARBAMAZEPINE
     Indication: MIGRAINE
     Route: 048
     Dates: start: 20180605, end: 20180711

REACTIONS (9)
  - Hypophagia [None]
  - Pancreatitis [None]
  - Abdominal pain upper [None]
  - Vomiting [None]
  - Diarrhoea [None]
  - Gastrointestinal pain [None]
  - Eosinophilia [None]
  - Hepatic enzyme increased [None]
  - Nausea [None]

NARRATIVE: CASE EVENT DATE: 20180712
